FAERS Safety Report 6671060-2 (Version None)
Quarter: 2010Q2

REPORT INFORMATION
  Report Type: 
  Country: None (occurrence: None)
  Receive Date: 20100407
  Receipt Date: 20100316
  Transmission Date: 20101027
  Serious: No
  Sender: FDA-Public Use
  Company Number: US-B.I. PHARMACEUTICALS,INC./RIDGEFIELD-2010-BP-03817BP

PATIENT
  Age: 69 Year
  Sex: Female
  Weight: 57.61 kg

DRUGS (6)
  1. VETMEDIN [Suspect]
     Dosage: 0.5 MG
     Route: 048
     Dates: start: 20100316
  2. PREMARIN [Concomitant]
     Route: 065
     Dates: start: 20100101
  3. WELCHOL [Concomitant]
     Route: 065
     Dates: start: 20100101
  4. PRILOSEC [Concomitant]
     Route: 065
     Dates: start: 20100101
  5. FOSAMAX [Concomitant]
     Route: 065
     Dates: start: 20100101
  6. MEDICATION NOT FURTHER SPECIFIED [Concomitant]
     Route: 065
     Dates: start: 20100101

REACTIONS (2)
  - ACCIDENTAL EXPOSURE [None]
  - NAUSEA [None]
